FAERS Safety Report 7343294-5 (Version None)
Quarter: 2011Q1

REPORT INFORMATION
  Report Type: 
  Country: None (occurrence: None)
  Receive Date: 20110301
  Receipt Date: 20110218
  Transmission Date: 20110831
  Serious: Yes (Hospitalization)
  Sender: FDA-Public Use
  Company Number: JP-2011-10331

PATIENT
  Age: 75 Year
  Sex: Male
  Weight: 53 kg

DRUGS (7)
  1. SAMSCA [Suspect]
     Indication: CARDIAC FAILURE
     Dosage: 15 MG MILLIGRAM(S), QD, ORAL
     Route: 048
     Dates: start: 20110207, end: 20110214
  2. LASIX [Concomitant]
  3. WARFARIN (WARFARIN POTASSIUM) [Concomitant]
  4. MICARDIS [Concomitant]
  5. PARIET (SODIUM RABERAZOLE) [Concomitant]
  6. ASPIRIN [Concomitant]
  7. CORETEC (OLPRINONE HYDROCHLORIDE) [Concomitant]

REACTIONS (4)
  - HYPERNATRAEMIA [None]
  - INCOHERENT [None]
  - DECREASED APPETITE [None]
  - ALTERED STATE OF CONSCIOUSNESS [None]
